FAERS Safety Report 17362435 (Version 1)
Quarter: 2020Q1

REPORT INFORMATION
  Report Type: Spontaneous
  Country: US (occurrence: US)
  Receive Date: 20200201
  Receipt Date: 20200201
  Transmission Date: 20200409
  Serious: Yes (Other)
  Sender: FDA-Public Use
  Company Number: None

PATIENT
  Age: 41 Year
  Sex: Female
  Weight: 99 kg

DRUGS (3)
  1. VITAMIN C,D [Concomitant]
  2. PLEGRIDY [Suspect]
     Active Substance: PEGINTERFERON BETA-1A
     Indication: MULTIPLE SCLEROSIS
     Dosage: ?          QUANTITY:2 INJECTION(S);OTHER FREQUENCY:EVERY 2 WEEKS;OTHER ROUTE:INJECTION RIGHT UNDER SKIN?
  3. PLEGRIDY [Concomitant]
     Active Substance: PEGINTERFERON BETA-1A

REACTIONS (9)
  - Tremor [None]
  - Injection site irritation [None]
  - Injection site infection [None]
  - Sensitive skin [None]
  - Dry skin [None]
  - Feeling cold [None]
  - Pain [None]
  - Headache [None]
  - Injection site bruising [None]

NARRATIVE: CASE EVENT DATE: 20200114
